FAERS Safety Report 8116223-4 (Version None)
Quarter: 2012Q1

REPORT INFORMATION
  Report Type: 
  Country: None (occurrence: None)
  Receive Date: 20120206
  Receipt Date: 20120124
  Transmission Date: 20120608
  Serious: Yes (Other)
  Sender: FDA-Public Use
  Company Number: BR-NOVOPROD-343770

PATIENT
  Sex: Female

DRUGS (2)
  1. NOVOLIN N [Suspect]
     Indication: TYPE 1 DIABETES MELLITUS
     Dosage: 40 U, QD (20U IN THE MORNING AND 20U AT NIGHT)
     Route: 065
  2. NOVORAPID PENFILL [Suspect]
     Indication: TYPE 1 DIABETES MELLITUS
     Dosage: UNK
     Route: 065

REACTIONS (4)
  - BLOOD GLUCOSE DECREASED [None]
  - CONVULSION [None]
  - RENAL DISORDER [None]
  - UTERINE HAEMORRHAGE [None]
